FAERS Safety Report 6794836-X (Version None)
Quarter: 2010Q2

REPORT INFORMATION
  Report Type: 
  Country: None (occurrence: None)
  Receive Date: 20100625
  Receipt Date: 20100616
  Transmission Date: 20101027
  Serious: Yes (Other)
  Sender: FDA-Public Use
  Company Number: FR-PFIZER INC-2010075256

PATIENT
  Age: 13 Year
  Sex: Female

DRUGS (1)
  1. XANAX [Suspect]
     Dosage: 2 DF, SINGLE

REACTIONS (2)
  - ACCIDENTAL DRUG INTAKE BY CHILD [None]
  - DRUG LEVEL INCREASED [None]
